FAERS Safety Report 6257699-7 (Version None)
Quarter: 2009Q3

REPORT INFORMATION
  Report Type: 
  Country: None (occurrence: None)
  Receive Date: 20090706
  Receipt Date: 20090626
  Transmission Date: 20100115
  Serious: No
  Sender: FDA-Public Use
  Company Number: US-BAXTER-2009BH008402

PATIENT
  Age: 52 Year
  Sex: Female

DRUGS (7)
  1. HEPARIN SODIUM INJECTION [Suspect]
     Indication: ANTICOAGULANT THERAPY
     Route: 058
     Dates: start: 20070609, end: 20070609
  2. HEPARIN SODIUM INJECTION [Suspect]
     Route: 065
     Dates: start: 20070610
  3. HEPARIN SODIUM INJECTION [Suspect]
     Route: 065
     Dates: start: 20070401
  4. HEPARIN SODIUM INJECTION [Suspect]
     Route: 058
     Dates: start: 20070611
  5. HEPARIN SODIUM INJECTION [Suspect]
     Route: 065
     Dates: start: 20080101
  6. UNSPECIFIED MEDICATION [Concomitant]
     Indication: DRUG USE FOR UNKNOWN INDICATION
     Route: 065
  7. BLOOD PRESSURE MEDICATIONS [Concomitant]
     Indication: HYPERTENSION
     Route: 065

REACTIONS (8)
  - BACK PAIN [None]
  - CONFUSIONAL STATE [None]
  - DYSPHAGIA [None]
  - ESCHERICHIA INFECTION [None]
  - FLANK PAIN [None]
  - HEADACHE [None]
  - HYPERHIDROSIS [None]
  - HYPOAESTHESIA [None]
